FAERS Safety Report 22045023 (Version 1)
Quarter: 2023Q1

REPORT INFORMATION
  Report Type: Spontaneous
  Country: US (occurrence: None)
  Receive Date: 20230227
  Receipt Date: 20230227
  Transmission Date: 20230417
  Serious: Yes (Other)
  Sender: FDA-Public Use
  Company Number: None

PATIENT
  Age: 51 Year
  Sex: Female
  Weight: 63 kg

DRUGS (3)
  1. METHYLPHENIDATE HYDROCHLORIDE [Suspect]
     Active Substance: METHYLPHENIDATE HYDROCHLORIDE
     Indication: Attention deficit hyperactivity disorder
     Dosage: OTHER QUANTITY : 30 TABLET(S);?
     Route: 048
     Dates: start: 20230123, end: 20230126
  2. CONCERTA [Concomitant]
  3. DIAZEPAM [Concomitant]
     Active Substance: DIAZEPAM

REACTIONS (8)
  - Mania [None]
  - Mood swings [None]
  - Crying [None]
  - Suicidal ideation [None]
  - Anger [None]
  - Nausea [None]
  - Product substitution issue [None]
  - Product physical issue [None]

NARRATIVE: CASE EVENT DATE: 20230126
